FAERS Safety Report 14795859 (Version 1)
Quarter: 2018Q2

REPORT INFORMATION
  Report Type: Report from Study
  Country: US (occurrence: US)
  Receive Date: 20180423
  Receipt Date: 20180423
  Transmission Date: 20180711
  Serious: No
  Sender: FDA-Public Use
  Company Number: US-AMGEN-USASL2018002134

PATIENT
  Age: 67 Year
  Sex: Female

DRUGS (1)
  1. REPATHA [Suspect]
     Active Substance: EVOLOCUMAB
     Indication: HYPERCHOLESTEROLAEMIA
     Dosage: 140 MG, Q2WK
     Route: 065
     Dates: end: 201802

REACTIONS (6)
  - Pruritus [Unknown]
  - Nausea [Not Recovered/Not Resolved]
  - Madarosis [Unknown]
  - Balance disorder [Unknown]
  - Ocular hyperaemia [Recovered/Resolved]
  - Alopecia [Unknown]
